FAERS Safety Report 24345883 (Version 1)
Quarter: 2024Q3

REPORT INFORMATION
  Report Type: Spontaneous
  Country: CN (occurrence: CN)
  Receive Date: 20240920
  Receipt Date: 20240920
  Transmission Date: 20241016
  Serious: Yes (Hospitalization)
  Sender: MERCK
  Company Number: CN-009507513-2409CHN005451

PATIENT
  Age: 91 Year
  Sex: Male

DRUGS (2)
  1. INVANZ [Suspect]
     Active Substance: ERTAPENEM SODIUM
     Indication: Pneumonia
     Dosage: 1 GRAM, QD
     Route: 041
     Dates: start: 20240902, end: 20240910
  2. AMMONIUM GLYCYRRHIZATE\CYSTEINE [Suspect]
     Active Substance: AMMONIUM GLYCYRRHIZATE\CYSTEINE
     Indication: Pneumonia
     Dosage: 100 ML, QD
     Route: 041
     Dates: start: 20240904, end: 20240910

REACTIONS (1)
  - Drug eruption [Recovering/Resolving]

NARRATIVE: CASE EVENT DATE: 20240906
